FAERS Safety Report 7277612-3 (Version None)
Quarter: 2011Q1

REPORT INFORMATION
  Report Type: 
  Country: None (occurrence: None)
  Receive Date: 20110207
  Receipt Date: 20110126
  Transmission Date: 20110831
  Serious: Yes (Other)
  Sender: FDA-Public Use
  Company Number: BE-JNJFOC-20110102734

PATIENT
  Sex: Female
  Weight: 72 kg

DRUGS (4)
  1. BENZODIAZEPINE NOS [Concomitant]
  2. INVEGA [Suspect]
     Route: 048
  3. TRAZOLAN [Concomitant]
  4. INVEGA [Suspect]
     Indication: PSYCHOTIC DISORDER
     Route: 048

REACTIONS (3)
  - VISUAL FIELD DEFECT [None]
  - DIPLOPIA [None]
  - MENINGIOMA [None]
